FAERS Safety Report 6530489-3 (Version None)
Quarter: 2010Q1

REPORT INFORMATION
  Report Type: 
  Country: None (occurrence: None)
  Receive Date: 20100106
  Receipt Date: 20100106
  Transmission Date: 20100710
  Serious: Yes (Other)
  Sender: FDA-Public Use
  Company Number: None

PATIENT
  Sex: Male
  Weight: 74.8435 kg

DRUGS (2)
  1. CLARITHROMYCIN [Suspect]
     Indication: BRONCHITIS
     Dosage: 1,000 MG ONCE DAILY TABLET
     Dates: start: 20091102
  2. CLARITHROMYCIN [Suspect]
     Indication: BRONCHITIS
     Dosage: 1,000 MG ONCE DAILY TABLET
     Dates: start: 20091104

REACTIONS (2)
  - MOOD ALTERED [None]
  - PSYCHOTIC DISORDER [None]
